FAERS Safety Report 22293493 (Version 2)
Quarter: 2023Q2

REPORT INFORMATION
  Report Type: Spontaneous
  Country: NZ (occurrence: NZ)
  Receive Date: 20230508
  Receipt Date: 20230511
  Transmission Date: 20230722
  Serious: No
  Sender: FDA-Public Use
  Company Number: NZ-MYLANLABS-2022M1093972

PATIENT
  Age: 76 Year
  Sex: Male

DRUGS (1)
  1. CLOZARIL [Suspect]
     Active Substance: CLOZAPINE
     Indication: Schizophrenia
     Dosage: UNK
     Route: 048
     Dates: start: 20220825

REACTIONS (7)
  - Lymphocyte count decreased [Not Recovered/Not Resolved]
  - Protein total decreased [Recovering/Resolving]
  - Haemoglobin decreased [Recovering/Resolving]
  - Neutrophil count increased [Recovering/Resolving]
  - Red blood cell count decreased [Recovering/Resolving]
  - White blood cell count increased [Recovering/Resolving]
  - Platelet count decreased [Not Recovered/Not Resolved]

NARRATIVE: CASE EVENT DATE: 20220829
